FAERS Safety Report 7613522-7 (Version None)
Quarter: 2011Q3

REPORT INFORMATION
  Report Type: 
  Country: None (occurrence: None)
  Receive Date: 20110708
  Receipt Date: 20110622
  Transmission Date: 20111222
  Serious: Yes (Other)
  Sender: FDA-Public Use
  Company Number: DSA_47038_2011

PATIENT
  Sex: Female

DRUGS (27)
  1. ZOFRAN [Concomitant]
  2. ETOPOSIDE [Concomitant]
  3. DIPHENHYDRAMINE HCL [Concomitant]
  4. SYNTHROID [Concomitant]
  5. GARDASIL [Concomitant]
  6. DOXORUBICIN HCL [Concomitant]
  7. ZANTAC [Concomitant]
  8. TAGAMET [Concomitant]
  9. CHEMOTHERAPEUTICS [Concomitant]
  10. BENADRYL ACHE [Concomitant]
  11. BACTRIM [Concomitant]
  12. BLEOMYCIN SULFATE [Concomitant]
  13. PREDNISONE [Concomitant]
  14. PHENERGAN HCL [Concomitant]
  15. CYCLOPHOSPHAMIDE [Concomitant]
  16. ACETAMINOPHEN [Concomitant]
  17. LEVOTHYROXINE SODIUM [Concomitant]
  18. STEROID ANTIBACTERIALS [Concomitant]
  19. VINCRISTINE [Concomitant]
  20. ONDANSETRON [Concomitant]
  21. PROMETHAZINE [Concomitant]
  22. CLARITIN [Concomitant]
  23. MOTRIN [Concomitant]
  24. AMOXICILLIN [Concomitant]
  25. ELIDEL [Suspect]
     Indication: DERMATITIS
     Dosage: 30 G, TOPICAL
     Route: 061
     Dates: start: 20020901
  26. INFLUENZA VIRUS [Concomitant]
  27. FLONASE [Concomitant]

REACTIONS (33)
  - HODGKIN'S DISEASE [None]
  - KERATITIS INTERSTITIAL [None]
  - EAR INFECTION [None]
  - NASAL CONGESTION [None]
  - CORNEAL OPACITY [None]
  - HILAR LYMPHADENOPATHY [None]
  - MYOPIA [None]
  - CONJUNCTIVITIS INFECTIVE [None]
  - PHARYNGITIS [None]
  - ACUTE SINUSITIS [None]
  - EYE IRRITATION [None]
  - THROAT IRRITATION [None]
  - CORNEAL NEOVASCULARISATION [None]
  - LYMPHADENOPATHY MEDIASTINAL [None]
  - LUNG NEOPLASM [None]
  - STREPTOCOCCAL INFECTION [None]
  - EYE PRURITUS [None]
  - HEART RATE INCREASED [None]
  - LYMPHADENOPATHY [None]
  - EAR DISORDER [None]
  - MENSTRUATION IRREGULAR [None]
  - TOOTH EXTRACTION [None]
  - OSTEOCHONDRITIS [None]
  - PYREXIA [None]
  - PHOTOPHOBIA [None]
  - VOMITING [None]
  - EYE COMPLICATION ASSOCIATED WITH DEVICE [None]
  - MYCOPLASMA INFECTION [None]
  - HYPOTHYROIDISM [None]
  - VIRAL INFECTION [None]
  - PAIN [None]
  - HEADACHE [None]
  - NAUSEA [None]
